FAERS Safety Report 7202894-3 (Version None)
Quarter: 2010Q4

REPORT INFORMATION
  Report Type: 
  Country: None (occurrence: None)
  Receive Date: 20101229
  Receipt Date: 20101209
  Transmission Date: 20110411
  Serious: No
  Sender: FDA-Public Use
  Company Number: US-B.I. PHARMACEUTICALS,INC./RIDGEFIELD-2010-BP-11478BP

PATIENT
  Sex: Female

DRUGS (4)
  1. COMBIVENT [Suspect]
     Indication: CHRONIC OBSTRUCTIVE PULMONARY DISEASE
     Dosage: 8 PUF
     Route: 055
     Dates: start: 20091001
  2. INSULIN [Concomitant]
     Indication: DIABETES MELLITUS
     Route: 058
  3. LISINOPRIL [Concomitant]
     Indication: HYPERTENSION
  4. TREVELENZ [Concomitant]
     Indication: GLAUCOMA

REACTIONS (2)
  - DRUG INEFFECTIVE [None]
  - SPUTUM RETENTION [None]
